FAERS Safety Report 9374651 (Version 2)
Quarter: 2013Q3

REPORT INFORMATION
  Report Type: Spontaneous
  Country: GB (occurrence: GB)
  Receive Date: 20130628
  Receipt Date: 20130710
  Transmission Date: 20140515
  Serious: Yes (Other)
  Sender: FDA-Public Use
  Company Number: GB-PFIZER INC-2013189517

PATIENT
  Age: 78 Year
  Sex: Male

DRUGS (6)
  1. ATORVASTATIN [Suspect]
     Indication: MYOCARDIAL ISCHAEMIA
     Dosage: 20 MG, UNK
     Route: 048
     Dates: start: 20130417
  2. ATORVASTATIN [Suspect]
     Indication: LIPIDS INCREASED
  3. SALBUTAMOL [Concomitant]
     Dosage: UNK
     Route: 055
  4. ASPIRIN [Concomitant]
     Dosage: UNK
  5. CLENIL MODULITE [Concomitant]
     Dosage: UNK
     Route: 055
  6. GAVISCON [Concomitant]
     Dosage: UNK

REACTIONS (3)
  - Myalgia [Unknown]
  - Muscle spasms [Unknown]
  - Dyspnoea [Unknown]
